FAERS Safety Report 11704048 (Version 1)
Quarter: 2015Q4

REPORT INFORMATION
  Report Type: Spontaneous
  Country: VN (occurrence: VN)
  Receive Date: 20151106
  Receipt Date: 20151106
  Transmission Date: 20160304
  Serious: Yes (Other)
  Sender: FDA-Public Use
  Company Number: VN-009507513-1511VNM002006

PATIENT
  Sex: Female
  Weight: 55 kg

DRUGS (1)
  1. COZAAR [Suspect]
     Active Substance: LOSARTAN POTASSIUM
     Dosage: 1 TABLET, ONCE A DAY
     Route: 048
     Dates: start: 20140601

REACTIONS (2)
  - Drug ineffective [Not Recovered/Not Resolved]
  - Hypertensive crisis [Not Recovered/Not Resolved]
